FAERS Safety Report 5819252-6 (Version None)
Quarter: 2008Q3

REPORT INFORMATION
  Report Type: 
  Country: None (occurrence: None)
  Receive Date: 20080723
  Receipt Date: 20080616
  Transmission Date: 20090109
  Serious: No
  Sender: FDA-Public Use
  Company Number: US-BAYER-200819115NA

PATIENT
  Sex: Male

DRUGS (1)
  1. TRASYLOL [Suspect]
     Indication: CORONARY ARTERY BYPASS
     Dates: start: 20031001

REACTIONS (4)
  - ALBUMIN GLOBULIN RATIO ABNORMAL [None]
  - BLOOD DISORDER [None]
  - GLOBULIN ABNORMAL [None]
  - PROTEIN TOTAL ABNORMAL [None]
